FAERS Safety Report 4401720-5 (Version None)
Quarter: 2004Q3

REPORT INFORMATION
  Report Type: 
  Country: None (occurrence: None)
  Receive Date: 20040714
  Receipt Date: 20040701
  Transmission Date: 20050211
  Serious: Yes (Death, Other)
  Sender: FDA-Public Use
  Company Number: 2004044516

PATIENT
  Age: 50 Year
  Sex: Female

DRUGS (2)
  1. ZOLOFT [Suspect]
     Indication: ILL-DEFINED DISORDER
     Dosage: ORAL
     Route: 048
     Dates: end: 20000113
  2. DIPHENHYDRAMINE HCL [Suspect]
     Indication: ILL-DEFINED DISORDER
     Dosage: ILL-DEFINED DISORDER
     Dates: end: 20000113

REACTIONS (4)
  - COMPLETED SUICIDE [None]
  - DEMENTIA [None]
  - INSOMNIA [None]
  - SEXUAL DYSFUNCTION [None]
